FAERS Safety Report 14071769 (Version 1)
Quarter: 2017Q4

REPORT INFORMATION
  Report Type: Spontaneous
  Country: US (occurrence: US)
  Receive Date: 20171010
  Receipt Date: 20171010
  Transmission Date: 20180321
  Serious: No
  Sender: FDA-Public Use
  Company Number: US-SA-2017SA192044

PATIENT
  Age: 50 Year
  Sex: Male

DRUGS (1)
  1. DUPIXENT [Suspect]
     Active Substance: DUPILUMAB
     Indication: DERMATITIS ATOPIC
     Route: 065
     Dates: start: 20170725

REACTIONS (6)
  - Respiratory tract congestion [Unknown]
  - Product use issue [Unknown]
  - Oral herpes [Unknown]
  - Productive cough [Unknown]
  - Lacrimation increased [Unknown]
  - Cough [Unknown]

NARRATIVE: CASE EVENT DATE: 20170725
